FAERS Safety Report 7544259-0 (Version None)
Quarter: 2011Q2

REPORT INFORMATION
  Report Type: 
  Country: None (occurrence: None)
  Receive Date: 20110613
  Receipt Date: 20070814
  Transmission Date: 20111010
  Serious: Yes (Other)
  Sender: FDA-Public Use
  Company Number: PHNR2005AU01182

PATIENT
  Sex: Male

DRUGS (2)
  1. CLOZAPINE [Suspect]
     Indication: SCHIZOPHRENIA
     Dates: start: 19960412, end: 20050728
  2. CLOZAPINE [Suspect]
     Dosage: 12.5-350MG DAILY
     Route: 048
     Dates: start: 20050818, end: 20070802

REACTIONS (6)
  - WHITE BLOOD CELL COUNT DECREASED [None]
  - NEUTROPENIA [None]
  - PLATELET COUNT DECREASED [None]
  - HEPATITIS C [None]
  - RESPIRATORY TRACT INFECTION BACTERIAL [None]
  - PYREXIA [None]
